FAERS Safety Report 7175981-6 (Version None)
Quarter: 2010Q4

REPORT INFORMATION
  Report Type: 
  Country: None (occurrence: None)
  Receive Date: 20101220
  Receipt Date: 20101210
  Transmission Date: 20110411
  Serious: Yes (Other)
  Sender: FDA-Public Use
  Company Number: US-BIOGENIDEC-2010BI043836

PATIENT
  Sex: Female

DRUGS (6)
  1. AVONEX [Suspect]
     Indication: MULTIPLE SCLEROSIS
     Route: 030
  2. LEXAPRO [Concomitant]
  3. MEDICATIONS [Concomitant]
  4. REFRESH [Concomitant]
  5. REFRESH [Concomitant]
  6. TYLOX [Concomitant]

REACTIONS (2)
  - ANEURYSM [None]
  - CEREBRAL THROMBOSIS [None]
